FAERS Safety Report 5920053-9 (Version None)
Quarter: 2008Q4

REPORT INFORMATION
  Report Type: 
  Country: None (occurrence: None)
  Receive Date: 20081014
  Receipt Date: 20081010
  Transmission Date: 20090506
  Serious: Yes (Hospitalization)
  Sender: FDA-Public Use
  Company Number: 1000001084

PATIENT
  Age: 57 Year
  Sex: Female

DRUGS (4)
  1. LEXAPRO [Suspect]
     Indication: ANXIETY
     Dosage: 10 MG (10 MG, 1 IN 1 D), ORAL
     Route: 048
     Dates: start: 20080911, end: 20080915
  2. LEXAPRO [Suspect]
     Indication: DEPRESSION
     Dosage: 10 MG (10 MG, 1 IN 1 D), ORAL
     Route: 048
     Dates: start: 20080911, end: 20080915
  3. ATENOLOL [Concomitant]
  4. XANAX [Concomitant]

REACTIONS (13)
  - BLOOD CHLORIDE DECREASED [None]
  - BLOOD POTASSIUM DECREASED [None]
  - CARBON DIOXIDE DECREASED [None]
  - CONVULSION [None]
  - DEHYDRATION [None]
  - HEADACHE [None]
  - HYPONATRAEMIA [None]
  - MEMORY IMPAIRMENT [None]
  - NAUSEA [None]
  - PHOTOPSIA [None]
  - TONIC CLONIC MOVEMENTS [None]
  - URINARY INCONTINENCE [None]
  - VOMITING [None]
